FAERS Safety Report 25555564 (Version 1)
Quarter: 2025Q3

REPORT INFORMATION
  Report Type: Spontaneous
  Country: US (occurrence: US)
  Receive Date: 20250715
  Receipt Date: 20250715
  Transmission Date: 20251020
  Serious: No
  Sender: NOVO NORDISK
  Company Number: US-NOVOPROD-1245011

PATIENT
  Sex: Male

DRUGS (1)
  1. OZEMPIC [Suspect]
     Active Substance: SEMAGLUTIDE
     Indication: Type 2 diabetes mellitus
     Route: 058

REACTIONS (7)
  - Muscular weakness [Recovered/Resolved]
  - Sinusitis [Unknown]
  - Hypertension [Unknown]
  - Drug intolerance [Unknown]
  - Abdominal discomfort [Unknown]
  - Dizziness [Unknown]
  - Weight decreased [Unknown]
